FAERS Safety Report 11001632 (Version 6)
Quarter: 2015Q2

REPORT INFORMATION
  Report Type: Report from Study
  Country: DE (occurrence: DE)
  Receive Date: 20150408
  Receipt Date: 20150605
  Transmission Date: 20150821
  Serious: Yes (Death, Life-Threatening, Hospitalization)
  Sender: FDA-Public Use
  Company Number: DE-PFIZER INC-2015111021

PATIENT
  Age: 54 Year
  Sex: Male

DRUGS (9)
  1. NOVAMINSULFON [Concomitant]
     Active Substance: METAMIZOLE
     Indication: PAIN
     Dosage: 1 G, UNK
     Route: 042
     Dates: start: 20150313, end: 20150316
  2. SUNITINIB MALATE [Suspect]
     Active Substance: SUNITINIB MALATE
     Dosage: UNK
  3. CLEXANE [Suspect]
     Active Substance: ENOXAPARIN SODIUM
     Indication: THROMBOSIS
     Dosage: 60 MG, UNK
     Route: 058
     Dates: start: 20150226, end: 20150403
  4. PANTOPRAZOLE [Concomitant]
     Active Substance: PANTOPRAZOLE SODIUM
     Indication: GASTROOESOPHAGEAL REFLUX DISEASE
     Dosage: 40 MG, UNK
     Route: 048
     Dates: start: 2012, end: 20150323
  5. MOVICOL [Concomitant]
     Active Substance: POLYETHYLENE GLYCOL 3350\POTASSIUM CHLORIDE\SODIUM BICARBONATE\SODIUM CHLORIDE
     Dosage: UNK
     Route: 048
     Dates: start: 20150313
  6. SUNITINIB MALATE [Suspect]
     Active Substance: SUNITINIB MALATE
     Indication: RENAL CELL CARCINOMA
     Dosage: 50 MG, CYCLIC (DAILY FOR 4 WEEKS, FOLLOWED BY 2 WEEKS OF REST, DOSED IN 6-WEEK CYCLES)
     Route: 048
     Dates: start: 20150302
  7. PANTOPRAZOLE [Concomitant]
     Active Substance: PANTOPRAZOLE SODIUM
     Dosage: 40 MG, UNK
     Route: 042
     Dates: start: 20150323
  8. NOVAMINSULFON [Concomitant]
     Active Substance: METAMIZOLE
     Dosage: 30 GTT, UNK
     Route: 048
     Dates: start: 20150323
  9. PALLADON [Concomitant]
     Active Substance: HYDROMORPHONE
     Indication: ANALGESIC THERAPY
     Dosage: 4 MG, UNK
     Route: 048
     Dates: start: 20150313

REACTIONS (3)
  - General physical health deterioration [Recovered/Resolved]
  - Gastrointestinal haemorrhage [Recovered/Resolved]
  - Intestinal haemorrhage [Fatal]

NARRATIVE: CASE EVENT DATE: 20150311
